FAERS Safety Report 7433017-3 (Version None)
Quarter: 2011Q2

REPORT INFORMATION
  Report Type: 
  Country: None (occurrence: None)
  Receive Date: 20110422
  Receipt Date: 20110413
  Transmission Date: 20111010
  Serious: Yes (Hospitalization)
  Sender: FDA-Public Use
  Company Number: US-ASTRAZENECA-2011SE21706

PATIENT
  Age: 83 Year
  Sex: Male

DRUGS (1)
  1. PULMICORT RESPULES [Suspect]
     Route: 055

REACTIONS (6)
  - DRUG DOSE OMISSION [None]
  - DIABETES MELLITUS [None]
  - CHRONIC OBSTRUCTIVE PULMONARY DISEASE [None]
  - DYSPNOEA [None]
  - COR PULMONALE ACUTE [None]
  - WEIGHT DECREASED [None]
